FAERS Safety Report 13967105 (Version 1)
Quarter: 2017Q3

REPORT INFORMATION
  Report Type: Spontaneous
  Country: US (occurrence: US)
  Receive Date: 20170914
  Receipt Date: 20170914
  Transmission Date: 20171128
  Serious: No
  Sender: FDA-Public Use
  Company Number: US-ASTRAZENECA-2014SE64341

PATIENT
  Sex: Female
  Weight: 50.8 kg

DRUGS (2)
  1. ZOMIG [Suspect]
     Active Substance: ZOLMITRIPTAN
     Indication: MIGRAINE
     Dosage: 5.0MG UNKNOWN
     Route: 048
     Dates: end: 201408
  2. ZOMIG [Suspect]
     Active Substance: ZOLMITRIPTAN
     Indication: MIGRAINE
     Dosage: GENERIC; 5 MG UNKNOWN
     Route: 048
     Dates: start: 201408

REACTIONS (3)
  - Joint swelling [Recovering/Resolving]
  - Dry skin [Unknown]
  - Oral herpes [Recovering/Resolving]
